FAERS Safety Report 24979410 (Version 1)
Quarter: 2025Q1

REPORT INFORMATION
  Report Type: Spontaneous
  Country: GB (occurrence: GB)
  Receive Date: 20250218
  Receipt Date: 20250218
  Transmission Date: 20250409
  Serious: Yes (Other)
  Sender: TEVA
  Company Number: GB-AUROBINDO-AUR-APL-2025-006420

PATIENT
  Age: 70 Year
  Sex: Male
  Weight: 83 kg

DRUGS (5)
  1. PREGABALIN [Suspect]
     Active Substance: PREGABALIN
     Indication: Idiopathic environmental intolerance
     Route: 065
  2. TRAMADOL [Suspect]
     Active Substance: TRAMADOL
     Indication: Idiopathic environmental intolerance
     Route: 048
  3. GABAPENTIN [Suspect]
     Active Substance: GABAPENTIN
     Indication: Idiopathic environmental intolerance
     Route: 048
  4. DULOXETINE [Suspect]
     Active Substance: DULOXETINE
     Indication: Idiopathic environmental intolerance
     Route: 048
  5. SERTRALINE [Suspect]
     Active Substance: SERTRALINE HYDROCHLORIDE
     Indication: Idiopathic environmental intolerance
     Route: 048

REACTIONS (1)
  - Condition aggravated [Recovered/Resolved]
